FAERS Safety Report 4578385-5 (Version None)
Quarter: 2005Q1

REPORT INFORMATION
  Report Type: 
  Country: None (occurrence: None)
  Receive Date: 20050202
  Receipt Date: 20050202
  Transmission Date: 20050727
  Serious: Yes (Hospitalization, Disabling)
  Sender: FDA-Public Use
  Company Number: None

PATIENT
  Age: 57 Year
  Sex: Female
  Weight: 79.3795 kg

DRUGS (4)
  1. HALOPERIDOL [Suspect]
     Indication: AGITATION
     Dosage: 5 MG IM Q 4 H PM
     Route: 030
     Dates: start: 20040115, end: 20040107
  2. CLONAZEPAM [Concomitant]
  3. DEPAKOTE [Concomitant]
  4. RISPERDAL [Concomitant]

REACTIONS (2)
  - AGITATION [None]
  - PARKINSONISM [None]
